FAERS Safety Report 12761733 (Version 1)
Quarter: 2016Q3

REPORT INFORMATION
  Report Type: Spontaneous
  Country: US (occurrence: US)
  Receive Date: 20160920
  Receipt Date: 20160920
  Transmission Date: 20161109
  Serious: No
  Sender: FDA-Public Use
  Company Number: US-PFIZER INC-2016433807

PATIENT
  Age: 50 Year
  Sex: Female
  Weight: 66 kg

DRUGS (1)
  1. PREMARIN [Suspect]
     Active Substance: ESTROGENS, CONJUGATED
     Indication: HORMONE REPLACEMENT THERAPY
     Dosage: 1.25 MG, DAILY
     Route: 048
     Dates: start: 201602, end: 201603

REACTIONS (7)
  - Abdominal pain upper [Unknown]
  - Feeling abnormal [Unknown]
  - Chest pain [Unknown]
  - Headache [Unknown]
  - Thyroid disorder [Recovered/Resolved]
  - Goitre [Recovered/Resolved]
  - Gastritis [Not Recovered/Not Resolved]
